FAERS Safety Report 6891613-6 (Version None)
Quarter: 2010Q3

REPORT INFORMATION
  Report Type: 
  Country: None (occurrence: None)
  Receive Date: 20100731
  Receipt Date: 20070810
  Transmission Date: 20110219
  Serious: No
  Sender: FDA-Public Use
  Company Number: US-PFIZER INC-2007067288

PATIENT
  Sex: Female

DRUGS (2)
  1. NORVASC [Suspect]
     Dates: start: 20070701
  2. WARFARIN SODIUM [Interacting]

REACTIONS (2)
  - DRUG INTERACTION [None]
  - INTERNATIONAL NORMALISED RATIO INCREASED [None]
